FAERS Safety Report 10159269 (Version 3)
Quarter: 2014Q2

REPORT INFORMATION
  Report Type: Spontaneous
  Country: FR (occurrence: FR)
  Receive Date: 20140508
  Receipt Date: 20140530
  Transmission Date: 20141212
  Serious: Yes (Other)
  Sender: FDA-Public Use
  Company Number: FR-JNJFOC-20140415940

PATIENT
  Age: 31 Year
  Sex: Female
  Weight: 56 kg

DRUGS (1)
  1. TRICILEST [Suspect]
     Indication: ORAL CONTRACEPTION
     Dosage: 4 MONTHS
     Route: 048
     Dates: start: 2014

REACTIONS (11)
  - Pericarditis [Recovering/Resolving]
  - Dyspnoea [Unknown]
  - Chest pain [Unknown]
  - Vision blurred [Recovering/Resolving]
  - Feeling abnormal [Unknown]
  - Eye pruritus [Unknown]
  - Choking sensation [Unknown]
  - Dizziness [Recovering/Resolving]
  - Nausea [Unknown]
  - Asthenopia [Unknown]
  - Photophobia [Unknown]
